APPROVED DRUG PRODUCT: LESCOL XL
Active Ingredient: FLUVASTATIN SODIUM
Strength: EQ 80MG BASE
Dosage Form/Route: TABLET, EXTENDED RELEASE;ORAL
Application: N021192 | Product #001 | TE Code: AB
Applicant: SANDOZ INC
Approved: Oct 6, 2000 | RLD: Yes | RS: Yes | Type: RX